FAERS Safety Report 10163669 (Version 2)
Quarter: 2014Q2

REPORT INFORMATION
  Report Type: Report from Study
  Country: US (occurrence: US)
  Receive Date: 20140509
  Receipt Date: 20140509
  Transmission Date: 20141212
  Serious: Yes (Other)
  Sender: FDA-Public Use
  Company Number: US-ABBVIE-14P-163-1228118-00

PATIENT
  Age: 69 Year
  Sex: Female
  Weight: 96.25 kg

DRUGS (14)
  1. HUMIRA [Suspect]
     Indication: RHEUMATOID ARTHRITIS
     Route: 058
     Dates: start: 2003, end: 2012
  2. HUMIRA [Suspect]
     Route: 058
     Dates: start: 2012, end: 20140105
  3. LISINOPRIL [Concomitant]
     Indication: HYPERTENSION
  4. CARTIA XT [Concomitant]
     Indication: HYPERTENSION
  5. SPIRONOLACTONE [Concomitant]
     Indication: FLUID RETENTION
  6. FUROSEMIDE [Concomitant]
     Indication: FLUID RETENTION
  7. LIPITOR [Concomitant]
     Indication: BLOOD CHOLESTEROL INCREASED
  8. PANTOPRAZOLE [Concomitant]
     Indication: GASTROOESOPHAGEAL REFLUX DISEASE
  9. IRON [Concomitant]
     Indication: MINERAL SUPPLEMENTATION
  10. FLONASE [Concomitant]
     Indication: HYPERSENSITIVITY
  11. CLARITIN [Concomitant]
     Indication: HYPERSENSITIVITY
  12. MUCINEX [Concomitant]
     Indication: HYPERSENSITIVITY
  13. COUMADIN [Concomitant]
     Indication: THROMBOSIS PROPHYLAXIS
     Route: 050
     Dates: start: 201403
  14. AFRIN [Concomitant]
     Indication: HYPERSENSITIVITY

REACTIONS (3)
  - Breast mass [Recovered/Resolved]
  - Breast cancer [Recovered/Resolved]
  - Rheumatoid arthritis [Not Recovered/Not Resolved]
